FAERS Safety Report 5998424-4 (Version None)
Quarter: 2008Q4

REPORT INFORMATION
  Report Type: 
  Country: None (occurrence: None)
  Receive Date: 20081213
  Receipt Date: 20080707
  Transmission Date: 20090506
  Serious: No
  Sender: FDA-Public Use
  Company Number: US-AMGEN-KDL290485

PATIENT
  Sex: Male
  Weight: 64 kg

DRUGS (2)
  1. ENBREL [Suspect]
     Indication: ANKYLOSING SPONDYLITIS
     Route: 058
     Dates: start: 20050203, end: 20080601
  2. VICODIN [Concomitant]

REACTIONS (6)
  - APHTHOUS STOMATITIS [None]
  - DRY MOUTH [None]
  - HYPOAESTHESIA ORAL [None]
  - LIP SWELLING [None]
  - PENILE BLISTER [None]
  - SWOLLEN TONGUE [None]
